FAERS Safety Report 17891423 (Version 5)
Quarter: 2021Q3

REPORT INFORMATION
  Report Type: Report from Study
  Country: IL (occurrence: IL)
  Receive Date: 20200612
  Receipt Date: 20210722
  Transmission Date: 20211014
  Serious: Yes (Hospitalization)
  Sender: FDA-Public Use
  Company Number: NVSC2020IL020350

PATIENT
  Age: 57 Year
  Sex: Female

DRUGS (4)
  1. AFINITOR [Suspect]
     Active Substance: EVEROLIMUS
     Indication: BREAST CANCER
     Dosage: 10 MG, QD
     Route: 048
     Dates: start: 20200101
  2. AFINITOR [Suspect]
     Active Substance: EVEROLIMUS
     Dosage: 10 MG, QD
     Route: 048
     Dates: start: 20210630
  3. AFINITOR [Suspect]
     Active Substance: EVEROLIMUS
     Dosage: 10 MG, QD
     Route: 048
     Dates: end: 20201209
  4. AFINITOR [Suspect]
     Active Substance: EVEROLIMUS
     Dosage: 10 MG, QD
     Route: 048
     Dates: start: 20210117, end: 20210131

REACTIONS (14)
  - Productive cough [Recovering/Resolving]
  - Upper limb fracture [Unknown]
  - Liver disorder [Unknown]
  - Vomiting [Recovered/Resolved]
  - Cough [Recovering/Resolving]
  - Fatigue [Not Recovered/Not Resolved]
  - Computerised tomogram abnormal [Unknown]
  - Blood glucose increased [Recovering/Resolving]
  - Decreased appetite [Recovering/Resolving]
  - Tracheal inflammation [Unknown]
  - Gastric pH decreased [Recovered/Resolved]
  - Positron emission tomogram abnormal [Unknown]
  - Fall [Unknown]
  - Fatigue [Recovered/Resolved]

NARRATIVE: CASE EVENT DATE: 20200206
